FAERS Safety Report 21279150 (Version 2)
Quarter: 2022Q3

REPORT INFORMATION
  Report Type: Other
  Country: ZA (occurrence: None)
  Receive Date: 20220901
  Receipt Date: 20220913
  Transmission Date: 20221027
  Serious: Yes (Other)
  Sender: FDA-Public Use
  Company Number: ZA-ROCHE-3166537

PATIENT
  Sex: Male

DRUGS (4)
  1. OCREVUS [Suspect]
     Active Substance: OCRELIZUMAB
     Indication: Multiple sclerosis relapse
     Dosage: THEREAFTER 600MG EVERY SIX MONTHS, RECEIVED SECOND DOSE ON 03/MAR/2022
     Route: 041
     Dates: start: 20220217
  2. LEVOTHYROXINE [Concomitant]
     Active Substance: LEVOTHYROXINE
  3. MIRABEGRON [Concomitant]
     Active Substance: MIRABEGRON
  4. LYRICA [Concomitant]
     Active Substance: PREGABALIN

REACTIONS (9)
  - Expanded disability status scale score increased [Unknown]
  - Micturition urgency [Unknown]
  - Urinary incontinence [Unknown]
  - Hypoaesthesia [Not Recovered/Not Resolved]
  - Oral herpes [Unknown]
  - Muscular weakness [Unknown]
  - Muscle spasticity [Unknown]
  - Heel-knee-shin test abnormal [Unknown]
  - Anal incontinence [Unknown]
